FAERS Safety Report 9435034 (Version 1)
Quarter: 2013Q3

REPORT INFORMATION
  Report Type: Report from Study
  Country: BR (occurrence: BR)
  Receive Date: 20130801
  Receipt Date: 20130801
  Transmission Date: 20140515
  Serious: Yes (Disabling, Other)
  Sender: FDA-Public Use
  Company Number: PHHY2013BR081717

PATIENT
  Age: 70 Year
  Sex: Female
  Weight: 75 kg

DRUGS (6)
  1. DIOVAN [Suspect]
     Indication: HYPERTENSION
     Dosage: 1 DF (80 MG), IN THE MORNING
     Route: 048
     Dates: start: 2007
  2. DIOVAN AMLO FIX [Suspect]
     Indication: HYPERTENSION
     Dosage: 1 DF (80/5 MG), AT NIGHT
     Route: 048
     Dates: start: 2008
  3. LIPITOR [Concomitant]
     Indication: CARDIAC DISORDER
  4. INSULIN [Concomitant]
     Indication: DIABETES MELLITUS
  5. GLIFAGE [Concomitant]
     Indication: DIABETES MELLITUS
  6. TICLOPIDINE [Concomitant]
     Indication: HEAD DISCOMFORT

REACTIONS (2)
  - Cerebrovascular accident [Recovered/Resolved with Sequelae]
  - Hemiplegia [Unknown]
